FAERS Safety Report 9177532 (Version 2)
Quarter: 2013Q2

REPORT INFORMATION
  Report Type: Spontaneous
  Country: US (occurrence: US)
  Receive Date: 20130321
  Receipt Date: 20130402
  Transmission Date: 20140414
  Serious: Yes (Hospitalization, Other)
  Sender: FDA-Public Use
  Company Number: US-BAYER-2013-032041

PATIENT
  Age: 16 Year
  Sex: Female

DRUGS (20)
  1. YASMIN [Suspect]
     Indication: MENORRHAGIA
  2. YASMIN [Suspect]
     Indication: ACNE
  3. YAZ [Suspect]
     Indication: ACNE
  4. OCELLA [Suspect]
     Indication: ACNE
  5. AZITHROMYCIN [Concomitant]
     Dosage: UNK
     Dates: start: 20070519
  6. PREDNISONE [Concomitant]
     Dosage: UNK
     Dates: start: 20070519
  7. CODAL DM [Concomitant]
     Dosage: UNK
     Dates: start: 20070519
  8. ALAVERT [Concomitant]
     Dosage: UNK
     Dates: start: 20070519
  9. NASONEX [Concomitant]
     Dosage: UNK
     Dates: start: 20070519
  10. CYCLOBENZAPRINE [Concomitant]
     Dosage: UNK
     Dates: start: 20070128
  11. CLEMASTINE FUMARATE [Concomitant]
     Dosage: UNK
     Dates: start: 20070628
  12. CLONIDINE [Concomitant]
     Indication: SLEEP DISORDER
     Dosage: UNK
     Dates: start: 20070628
  13. FOLIC ACID [Concomitant]
     Dosage: UNK
     Dates: start: 20070628
  14. IBUPROFEN [Concomitant]
     Dosage: UNK
     Dates: start: 20070628
  15. DEXILANT [Concomitant]
  16. SINGULAIR [Concomitant]
  17. ONDANSETRON [Concomitant]
  18. DEPO-PROVERA [Concomitant]
  19. PHENERGAN [Concomitant]
  20. LEVAQUIN [Concomitant]

REACTIONS (7)
  - Injury [None]
  - Pain [None]
  - Pelvic venous thrombosis [None]
  - Deep vein thrombosis [None]
  - Pulmonary embolism [Recovered/Resolved]
  - Cholecystitis chronic [None]
  - Pain [None]
